FAERS Safety Report 25817583 (Version 1)
Quarter: 2025Q3

REPORT INFORMATION
  Report Type: Report from Study
  Country: EU (occurrence: EU)
  Receive Date: 20250918
  Receipt Date: 20250918
  Transmission Date: 20251021
  Serious: Yes (Death, Other)
  Sender: MERZ
  Company Number: EU-MERZ PHARMACEUTICALS LLC-ACO_179049_2025

PATIENT
  Age: 58 Year
  Sex: Female

DRUGS (1)
  1. DALFAMPRIDINE [Suspect]
     Active Substance: DALFAMPRIDINE
     Indication: Product used for unknown indication
     Dosage: 10 MILLIGRAM, BID
     Route: 065
     Dates: start: 20250321, end: 20250819

REACTIONS (1)
  - Death [Fatal]

NARRATIVE: CASE EVENT DATE: 20250819
